FAERS Safety Report 9496260 (Version 2)
Quarter: 2016Q3

REPORT INFORMATION
  Report Type: Spontaneous
  Country: US (occurrence: US)
  Receive Date: 20130904
  Receipt Date: 20160810
  Transmission Date: 20161109
  Serious: Yes (Hospitalization)
  Sender: FDA-Public Use
  Company Number: US-RANBAXY-2013US-72715

PATIENT
  Age: 16 Year
  Sex: Female

DRUGS (8)
  1. PAROXETINE. [Concomitant]
     Active Substance: PAROXETINE
     Indication: DEPRESSION
     Dosage: 10 MG, DAILY
     Route: 065
  2. RISPERIDONE. [Suspect]
     Active Substance: RISPERIDONE
     Indication: MOOD ALTERED
     Dosage: 0.5 MG, BID
     Route: 065
  3. RISPERIDONE. [Suspect]
     Active Substance: RISPERIDONE
     Indication: IMPULSIVE BEHAVIOUR
  4. KEPPRA [Concomitant]
     Active Substance: LEVETIRACETAM
     Indication: PAIN
  5. CARNITOR [Concomitant]
     Active Substance: LEVOCARNITINE
     Indication: MITOCHONDRIAL CYTOPATHY
     Dosage: 700 MG, TID
     Route: 065
  6. COENZYME Q-10 [Concomitant]
     Indication: MITOCHONDRIAL CYTOPATHY
     Dosage: 200 MG, BID
     Route: 065
  7. KEPPRA [Concomitant]
     Active Substance: LEVETIRACETAM
     Indication: SEIZURE
     Dosage: 1000 MG, BID
  8. IBUPROFEN. [Concomitant]
     Active Substance: IBUPROFEN
     Indication: PAIN
     Dosage: UNK
     Route: 065

REACTIONS (2)
  - Substance-induced psychotic disorder [Recovered/Resolved]
  - Depression [Recovering/Resolving]
